FAERS Safety Report 20662404 (Version 2)
Quarter: 2022Q2

REPORT INFORMATION
  Report Type: Report from Study
  Country: US (occurrence: US)
  Receive Date: 20220401
  Receipt Date: 20220413
  Transmission Date: 20220721
  Serious: Yes (Hospitalization)
  Sender: FDA-Public Use
  Company Number: US-TAKEDA-2022TUS021254

PATIENT
  Sex: Female

DRUGS (8)
  1. TEDUGLUTIDE [Suspect]
     Active Substance: TEDUGLUTIDE
     Indication: Short-bowel syndrome
     Dosage: 2.41 MILLIGRAM, QD
     Route: 058
     Dates: start: 20220222
  2. TEDUGLUTIDE [Suspect]
     Active Substance: TEDUGLUTIDE
     Indication: Short-bowel syndrome
     Dosage: 2.41 MILLIGRAM, QD
     Route: 058
     Dates: start: 20220222
  3. TEDUGLUTIDE [Suspect]
     Active Substance: TEDUGLUTIDE
     Indication: Short-bowel syndrome
     Dosage: 2.41 MILLIGRAM, QD
     Route: 058
     Dates: start: 20220222
  4. TEDUGLUTIDE [Suspect]
     Active Substance: TEDUGLUTIDE
     Indication: Short-bowel syndrome
     Dosage: 2.41 MILLIGRAM, QD
     Route: 058
     Dates: start: 20220222
  5. TEDUGLUTIDE [Suspect]
     Active Substance: TEDUGLUTIDE
     Dosage: 2.41 MILLIGRAM, QD
     Route: 058
     Dates: start: 20220301
  6. TEDUGLUTIDE [Suspect]
     Active Substance: TEDUGLUTIDE
     Dosage: 2.41 MILLIGRAM, QD
     Route: 058
     Dates: start: 20220301
  7. TEDUGLUTIDE [Suspect]
     Active Substance: TEDUGLUTIDE
     Dosage: 2.41 MILLIGRAM, QD
     Route: 058
     Dates: start: 20220301
  8. TEDUGLUTIDE [Suspect]
     Active Substance: TEDUGLUTIDE
     Dosage: 2.41 MILLIGRAM, QD
     Route: 058
     Dates: start: 20220301

REACTIONS (1)
  - Hospitalisation [Unknown]
